FAERS Safety Report 15159470 (Version 2)
Quarter: 2018Q3

REPORT INFORMATION
  Report Type: Spontaneous
  Country: US (occurrence: US)
  Receive Date: 20180718
  Receipt Date: 20180720
  Transmission Date: 20181010
  Serious: Yes (Other)
  Sender: FDA-Public Use
  Company Number: US-AMGEN-USASP2018094498

PATIENT
  Age: 82 Year
  Sex: Female

DRUGS (10)
  1. SIMVASTATIN. [Concomitant]
     Active Substance: SIMVASTATIN
     Dosage: 20 MG, UNK
  2. NYSTATIN. [Concomitant]
     Active Substance: NYSTATIN
     Indication: FUNGAL INFECTION
     Dosage: UNK UNK, AS NECESSARY
     Dates: start: 2016
  3. VITAMIN D [Concomitant]
     Active Substance: CHOLECALCIFEROL
     Dosage: UNK
  4. LASIX [Concomitant]
     Active Substance: FUROSEMIDE
     Dosage: 60 MG, QD
  5. LEVOTHYROXINE. [Concomitant]
     Active Substance: LEVOTHYROXINE
     Dosage: 88 MUG, QD
  6. GENTAMICIN. [Concomitant]
     Active Substance: GENTAMICIN
     Dosage: TWO DROPS, Q8H
     Dates: start: 201712
  7. LINZESS [Concomitant]
     Active Substance: LINACLOTIDE
     Dosage: 145 MG, AS NECESSARY
     Dates: start: 2016
  8. SPIRONOLACTONE. [Concomitant]
     Active Substance: SPIRONOLACTONE
     Dosage: 100 MG, QD
     Dates: start: 2018
  9. SOTALOL. [Concomitant]
     Active Substance: SOTALOL
     Dosage: 80 MG, QD
     Dates: start: 2014
  10. SENSIPAR [Suspect]
     Active Substance: CINACALCET HYDROCHLORIDE
     Indication: PRODUCT USED FOR UNKNOWN INDICATION
     Dosage: 30 MG, BID
     Route: 065
     Dates: start: 2016

REACTIONS (6)
  - Ankle fracture [Unknown]
  - Knee operation [Unknown]
  - Arthralgia [Unknown]
  - Swelling [Recovered/Resolved]
  - Thyroidectomy [Unknown]
  - Arthropathy [Unknown]

NARRATIVE: CASE EVENT DATE: 20171026
